FAERS Safety Report 8981774 (Version 1)
Quarter: 2012Q4

REPORT INFORMATION
  Report Type: 
  Country: IT (occurrence: IT)
  Receive Date: 20121223
  Receipt Date: 20121223
  Transmission Date: 20130627
  Serious: Yes (Disabling)
  Sender: FDA-Public Use
  Company Number: PHHY2012IT110661

PATIENT
  Sex: Female

DRUGS (2)
  1. ZOMETA [Suspect]
     Indication: MULTIPLE MYELOMA
     Dosage: 4 mg, monthly
     Route: 042
     Dates: start: 20030804, end: 20050303
  2. CYCLOPHOSPHAMIDE [Concomitant]
     Dosage: UNK UKN, UNK
     Route: 042
     Dates: start: 20050301, end: 20050331

REACTIONS (1)
  - Osteonecrosis of jaw [Not Recovered/Not Resolved]
